FAERS Safety Report 15903027 (Version 1)
Quarter: 2019Q1

REPORT INFORMATION
  Report Type: Spontaneous
  Country: GB (occurrence: GB)
  Receive Date: 20190202
  Receipt Date: 20190202
  Transmission Date: 20190417
  Serious: Yes (Hospitalization)
  Sender: FDA-Public Use
  Company Number: GB-MICRO LABS LIMITED-ML2019-00135

PATIENT
  Age: 84 Year
  Sex: Female

DRUGS (7)
  1. CELECOXIB. [Suspect]
     Active Substance: CELECOXIB
     Route: 048
  2. DOXAZOSIN [Concomitant]
     Active Substance: DOXAZOSIN\DOXAZOSIN MESYLATE
  3. RAMIPRIL. [Concomitant]
     Active Substance: RAMIPRIL
  4. SOLIFENACIN [Concomitant]
     Active Substance: SOLIFENACIN
  5. METHOTREXATE. [Suspect]
     Active Substance: METHOTREXATE
     Route: 048
  6. FOLIC ACID. [Concomitant]
     Active Substance: FOLIC ACID
     Route: 048
  7. LEVOTHYROXINE. [Concomitant]
     Active Substance: LEVOTHYROXINE

REACTIONS (4)
  - Upper gastrointestinal haemorrhage [Unknown]
  - Haematemesis [Unknown]
  - Malaise [Unknown]
  - Gastric ulcer [Unknown]
